FAERS Safety Report 13354905 (Version 1)
Quarter: 2017Q1

REPORT INFORMATION
  Report Type: Spontaneous
  Country: US (occurrence: US)
  Receive Date: 20170321
  Receipt Date: 20170321
  Transmission Date: 20170429
  Serious: Yes (Other)
  Sender: FDA-Public Use
  Company Number: US-PFIZER INC-2017104742

PATIENT
  Age: 61 Year
  Sex: Male
  Weight: 81.63 kg

DRUGS (8)
  1. SUTENT [Suspect]
     Active Substance: SUNITINIB MALATE
     Indication: CHONDROSARCOMA METASTATIC
     Dosage: 37.5 MG, DAILY(RECOMMENDED WITHOUT BREAKS)
     Dates: start: 201107
  2. BIPERIDENO [Concomitant]
     Dosage: UNK
  3. STALEVO [Concomitant]
     Active Substance: CARBIDOPA\ENTACAPONE\LEVODOPA
     Dosage: CARBIDOPA 12.5MG/ ENTACAPONE 200MG/LEVODOPA 50MG
  4. LEVOTHROID [Concomitant]
     Active Substance: LEVOTHYROXINE SODIUM
     Dosage: UNK
  5. AMANTADINE HCL [Concomitant]
     Active Substance: AMANTADINE HYDROCHLORIDE
     Dosage: UNK
  6. KINESTREL [Concomitant]
     Dosage: UNK
  7. MICARDIS HCT [Concomitant]
     Active Substance: HYDROCHLOROTHIAZIDE\TELMISARTAN
     Dosage: HYDROCHLOROTHIAZIDE 12.5MG/ TELMISARTAN 40MG
  8. SUTENT [Suspect]
     Active Substance: SUNITINIB MALATE
     Dosage: 25 MG, DAILY(WITHOUT BREAK)
     Route: 048

REACTIONS (16)
  - Dry skin [Not Recovered/Not Resolved]
  - Muscular weakness [Recovering/Resolving]
  - Product use issue [Unknown]
  - Parkinsonism [Unknown]
  - Hypertension [Unknown]
  - Hypothyroidism [Unknown]
  - Chest pain [Unknown]
  - Weight increased [Unknown]
  - Abdominal pain [Unknown]
  - Musculoskeletal pain [Unknown]
  - Bursitis [Unknown]
  - Diarrhoea [Recovered/Resolved]
  - Erectile dysfunction [Unknown]
  - Dry mouth [Recovered/Resolved]
  - Fatigue [Recovered/Resolved]
  - Back pain [Recovered/Resolved]

NARRATIVE: CASE EVENT DATE: 201107
